FAERS Safety Report 24082131 (Version 1)
Quarter: 2024Q3

REPORT INFORMATION
  Report Type: Spontaneous
  Country: HR (occurrence: HR)
  Receive Date: 20240712
  Receipt Date: 20240712
  Transmission Date: 20241016
  Serious: Yes (Other)
  Sender: ABBVIE
  Company Number: HR-ABBVIE-5833163

PATIENT
  Age: 21 Year
  Sex: Female

DRUGS (2)
  1. RINVOQ [Suspect]
     Active Substance: UPADACITINIB
     Indication: Colitis ulcerative
     Dosage: FORM STRENGTH: 15MG
     Route: 048
     Dates: start: 20240702, end: 20240709
  2. RINVOQ [Suspect]
     Active Substance: UPADACITINIB
     Indication: Colitis ulcerative
     Dosage: FORM STRENGTH: 15MG
     Route: 048
     Dates: start: 20240625, end: 20240702

REACTIONS (5)
  - Diarrhoea haemorrhagic [Unknown]
  - Intestinal haemorrhage [Unknown]
  - Abnormal faeces [Unknown]
  - Defaecation urgency [Unknown]
  - Mucous stools [Unknown]

NARRATIVE: CASE EVENT DATE: 20240101
